FAERS Safety Report 5676268-0 (Version None)
Quarter: 2008Q1

REPORT INFORMATION
  Report Type: 
  Country: None (occurrence: None)
  Receive Date: 20080321
  Receipt Date: 20080314
  Transmission Date: 20080703
  Serious: Yes (Death, Other)
  Sender: FDA-Public Use
  Company Number: DE-BOEHRINGER INGELHEIM GMBH, GERMANY-2008-DE-01622GD

PATIENT

DRUGS (4)
  1. DIPYRIDAMOLE [Suspect]
     Indication: THROMBOSIS PROPHYLAXIS
     Dosage: 2 - 15 MG/KG (MAX. 1200 MG)
     Route: 048
  2. ASPIRIN [Suspect]
     Indication: THROMBOSIS PROPHYLAXIS
     Dosage: 0.5 - 5 MG/KG (MAX. 300 MG/D)
     Route: 048
  3. HEPARIN [Suspect]
     Indication: THROMBOSIS PROPHYLAXIS
     Dosage: 3 - 20 IU/KG/H
  4. COUMADIN [Suspect]
     Indication: THROMBOSIS PROPHYLAXIS
     Dosage: 0.1 - 1.5 MG/KG
     Route: 048

REACTIONS (4)
  - CEREBRAL DISORDER [None]
  - EMBOLISM [None]
  - HAEMORRHAGE [None]
  - MULTI-ORGAN FAILURE [None]
